FAERS Safety Report 12601313 (Version 1)
Quarter: 2016Q3

REPORT INFORMATION
  Report Type: Report from Study
  Country: US (occurrence: US)
  Receive Date: 20160728
  Receipt Date: 20160728
  Transmission Date: 20161109
  Serious: Yes (Other)
  Sender: FDA-Public Use
  Company Number: US-ROCHE-1019952

PATIENT
  Age: 69 Year
  Sex: Female
  Weight: 74.5 kg

DRUGS (9)
  1. VISMODEGIB [Suspect]
     Active Substance: VISMODEGIB
     Indication: SMALL CELL LUNG CANCER
     Dosage: COURSE 1?LAST DOSE RECEIVED ON 02/FEB/2012
     Route: 048
     Dates: start: 20110621
  2. VISMODEGIB [Suspect]
     Active Substance: VISMODEGIB
     Dosage: COURSE 12
     Route: 048
     Dates: start: 20120207
  3. VISMODEGIB [Suspect]
     Active Substance: VISMODEGIB
     Dosage: COURSE 3
     Route: 048
     Dates: start: 20110803
  4. VISMODEGIB [Suspect]
     Active Substance: VISMODEGIB
     Dosage: COURSE 8
     Route: 048
     Dates: start: 20111114
  5. ETOPOSIDE. [Suspect]
     Active Substance: ETOPOSIDE
     Indication: SMALL CELL LUNG CANCER
     Dosage: 100 MG/M2/DAY IV OVER 2 HOURS ON DAY 1-3
     Route: 042
     Dates: start: 20110621
  6. VISMODEGIB [Suspect]
     Active Substance: VISMODEGIB
     Dosage: COURSE 5
     Route: 048
     Dates: start: 20110913
  7. VISMODEGIB [Suspect]
     Active Substance: VISMODEGIB
     Dosage: COURSE 4
     Route: 048
     Dates: start: 20110823
  8. VISMODEGIB [Suspect]
     Active Substance: VISMODEGIB
     Dosage: COURSE 2
     Route: 048
     Dates: start: 20110712
  9. CISPLATIN. [Suspect]
     Active Substance: CISPLATIN
     Indication: SMALL CELL LUNG CANCER
     Route: 042
     Dates: start: 20110621

REACTIONS (7)
  - Hypertension [Unknown]
  - Dyspnoea [Unknown]
  - Muscular weakness [Unknown]
  - Pancreas infection [Unknown]
  - Febrile neutropenia [Unknown]
  - Hypertension [Recovered/Resolved]
  - Hyperglycaemia [Unknown]

NARRATIVE: CASE EVENT DATE: 20110823
